FAERS Safety Report 6962611-9 (Version None)
Quarter: 2010Q3

REPORT INFORMATION
  Report Type: 
  Country: None (occurrence: None)
  Receive Date: 20100902
  Receipt Date: 20100823
  Transmission Date: 20110219
  Serious: Yes (Other)
  Sender: FDA-Public Use
  Company Number: DE-PFIZER INC-2010105850

PATIENT
  Age: 51 Year
  Sex: Female

DRUGS (4)
  1. CHAMPIX [Suspect]
     Dosage: 0.5 MG, 1X/DAY
     Route: 048
     Dates: start: 20100801
  2. PREDNISOLONE [Concomitant]
     Dosage: UNK
  3. AMPICILLIN AND SULBACTAM [Concomitant]
     Dosage: UNK
  4. ARAVA [Concomitant]
     Dosage: UNK

REACTIONS (3)
  - FATIGUE [None]
  - OROPHARYNGEAL BLISTERING [None]
  - PRURITUS GENERALISED [None]
